FAERS Safety Report 12681268 (Version 1)
Quarter: 2016Q3

REPORT INFORMATION
  Report Type: Spontaneous
  Country: US (occurrence: US)
  Receive Date: 20160824
  Receipt Date: 20160824
  Transmission Date: 20161109
  Serious: Yes (Other)
  Sender: FDA-Public Use
  Company Number: US-SMITH AND NEPHEW, INC-2016SMT00690

PATIENT
  Age: 69 Year
  Sex: Male
  Weight: 113.38 kg

DRUGS (6)
  1. REGRANEX [Suspect]
     Active Substance: BECAPLERMIN
     Indication: DIABETIC ULCER
     Dosage: UNK UNK, 1X/DAY
     Route: 061
     Dates: start: 201606, end: 20160704
  2. GLUCOPHAGE [Concomitant]
     Active Substance: METFORMIN HYDROCHLORIDE
     Dosage: UNK, 2X/DAY
  3. MONOPRIL [Concomitant]
     Active Substance: FOSINOPRIL SODIUM
     Dosage: UNK, 2X/DAY
  4. LANTUS [Concomitant]
     Active Substance: INSULIN GLARGINE
     Dosage: UNK, 2X/DAY
  5. NOVOLOG [Concomitant]
     Active Substance: INSULIN ASPART
     Dosage: UNK, 3X/DAY
  6. INVOKANA [Concomitant]
     Active Substance: CANAGLIFLOZIN
     Dosage: UNK, 1X/DAY

REACTIONS (1)
  - Wound infection [Recovering/Resolving]

NARRATIVE: CASE EVENT DATE: 20160704
